FAERS Safety Report 9408106 (Version 6)
Quarter: 2014Q1

REPORT INFORMATION
  Report Type: Report from Study
  Country: US (occurrence: US)
  Receive Date: 20130718
  Receipt Date: 20140225
  Transmission Date: 20141002
  Serious: Yes (Hospitalization)
  Sender: FDA-Public Use
  Company Number: US-FRI-1000046633

PATIENT
  Age: 8 Year
  Sex: Male
  Weight: 36.9 kg

DRUGS (7)
  1. MEMANTINE (OPEN-LABEL) [Suspect]
     Indication: ASPERGER^S DISORDER
     Dosage: 6 MG
     Route: 048
     Dates: start: 20130416, end: 20130708
  2. MEMANTINE [Suspect]
     Indication: ASPERGER^S DISORDER
     Dosage: 3 MG TITRATED TO 6 MG
     Route: 048
     Dates: start: 20130305, end: 20130415
  3. SEROQUEL [Concomitant]
     Indication: AUTISM SPECTRUM DISORDER
     Dosage: 300 MG
     Route: 048
     Dates: start: 20110203
  4. REMERON [Concomitant]
     Indication: ILL-DEFINED DISORDER
     Dosage: 15 MG
     Route: 048
     Dates: start: 20120119
  5. SEROQUEL XR [Concomitant]
     Indication: AUTISM SPECTRUM DISORDER
     Dosage: 200 MG
     Route: 048
     Dates: start: 20130501
  6. BENADRYL [Concomitant]
     Indication: ARTHROPOD STING
     Dosage: 25 MG
     Route: 048
     Dates: start: 20130627, end: 20130629
  7. LOXAPINE [Concomitant]
     Indication: ATRIAL SEPTAL DEFECT
     Dosage: 30 MG
     Route: 048
     Dates: start: 20130427, end: 20130430

REACTIONS (1)
  - Dysphoria [Recovered/Resolved]
